FAERS Safety Report 6182900-8 (Version None)
Quarter: 2009Q2

REPORT INFORMATION
  Report Type: 
  Country: None (occurrence: None)
  Receive Date: 20090507
  Receipt Date: 20090427
  Transmission Date: 20091009
  Serious: Yes (Disabling, Other)
  Sender: FDA-Public Use
  Company Number: US-MERCK-0904USA03636

PATIENT
  Age: 76 Year
  Sex: Female

DRUGS (1)
  1. SINGULAIR [Suspect]
     Route: 048
     Dates: end: 20090101

REACTIONS (8)
  - ALLERGIC GRANULOMATOUS ANGIITIS [None]
  - BRONCHIAL SECRETION RETENTION [None]
  - COLLAPSE OF LUNG [None]
  - COUGH [None]
  - DYSPNOEA [None]
  - LABORATORY TEST ABNORMAL [None]
  - LUNG NEOPLASM MALIGNANT [None]
  - MUCOUS MEMBRANE DISORDER [None]
